FAERS Safety Report 21037509 (Version 4)
Quarter: 2022Q3

REPORT INFORMATION
  Report Type: Spontaneous
  Country: JP (occurrence: JP)
  Receive Date: 20220703
  Receipt Date: 20220920
  Transmission Date: 20221026
  Serious: Yes (Other)
  Sender: FDA-Public Use
  Company Number: JP-NOVARTISPH-NVSJ2022JP093167

PATIENT
  Sex: Female

DRUGS (3)
  1. BEOVU [Suspect]
     Active Substance: BROLUCIZUMAB-DBLL
     Indication: Age-related macular degeneration
     Dosage: 6 MG
     Route: 031
     Dates: start: 20220606, end: 20220606
  2. KALLIDINOGENASE [Concomitant]
     Active Substance: KALLIDINOGENASE
     Indication: Product used for unknown indication
     Dosage: UNK, TID
     Route: 048
  3. BERAPROST SODIUM [Concomitant]
     Active Substance: BERAPROST SODIUM
     Indication: Product used for unknown indication
     Dosage: UNK, TID
     Route: 048

REACTIONS (6)
  - Iritis [Recovered/Resolved]
  - Retinal vasculitis [Recovering/Resolving]
  - Retinal artery occlusion [Recovering/Resolving]
  - Vitreous opacities [Recovered/Resolved]
  - Blindness transient [Recovered/Resolved]
  - Ciliary hyperaemia [Recovered/Resolved]

NARRATIVE: CASE EVENT DATE: 20220616
